FAERS Safety Report 9729988 (Version 3)
Quarter: 2013Q4

REPORT INFORMATION
  Report Type: Spontaneous
  Country: IT (occurrence: None)
  Receive Date: 20131203
  Receipt Date: 20131231
  Transmission Date: 20140711
  Serious: Yes (Hospitalization)
  Sender: FDA-Public Use
  Company Number: AUR-APL-2013-09894

PATIENT
  Age: 87 Year
  Sex: Female

DRUGS (9)
  1. BISOPROLOL [Suspect]
     Indication: PRODUCT USED FOR UNKNOWN INDICATION
     Dosage: 1.25 MG, 1 D), ORAL
     Route: 048
     Dates: start: 20110927, end: 20130716
  2. BISOPROLOL [Suspect]
     Indication: HYPERTENSIVE HEART DISEASE
     Dosage: 1.25 MG, 1 D), ORAL
     Route: 048
     Dates: start: 20110927, end: 20130716
  3. COUMADIN (WARFARIN SODIUM) [Suspect]
     Indication: ATRIAL FIBRILLATION
     Dosage: 1 DOSAGE FORMS, 1 D), ORAL
     Dates: start: 20110703, end: 20130716
  4. COUMADIN (WARFARIN SODIUM) [Suspect]
     Indication: ATRIAL FIBRILLATION
     Dosage: 1 DOSAGE FORMS, 1 D), ORAL
     Dates: start: 20110703, end: 20130716
  5. LANOXIN (DIGOXIN) [Suspect]
     Indication: HYPERTENSIVE HEART DISEASE
     Dosage: 0.13 MG, 1 D), ORAL
     Route: 048
     Dates: start: 20110101, end: 20130716
  6. LANOXIN (DIGOXIN) [Suspect]
     Indication: HYPERTENSIVE HEART DISEASE
     Dosage: 0.13 MG, 1 D), ORAL
     Route: 048
     Dates: start: 20110101, end: 20130716
  7. PRITOR (LACIDIPINE) [Concomitant]
  8. PANTORC (PANTOPRAZOLE SODIUM SESQUIHYDRATE) [Concomitant]
  9. FUROSEMIDE (FUROSEMIDE) [Concomitant]

REACTIONS (11)
  - Bradycardia [None]
  - Arrhythmia [None]
  - Extrasystoles [None]
  - Asthenia [None]
  - Oedema peripheral [None]
  - International normalised ratio increased [None]
  - Thrombocytopenia [None]
  - Extrasystoles [None]
  - Toxicity to various agents [None]
  - Oedema peripheral [None]
  - Cardioactive drug level above therapeutic [None]
